FAERS Safety Report 8485913-6 (Version None)
Quarter: 2012Q3

REPORT INFORMATION
  Report Type: 
  Country: None (occurrence: None)
  Receive Date: 20120703
  Receipt Date: 20120626
  Transmission Date: 20120928
  Serious: Yes (Hospitalization)
  Sender: FDA-Public Use
  Company Number: FR-UCBSA-060648

PATIENT
  Age: 70 Year
  Sex: Female

DRUGS (1)
  1. VIMPAT [Suspect]
     Route: 048
     Dates: end: 20120101

REACTIONS (5)
  - CEREBROVASCULAR ACCIDENT [None]
  - CARDIOVASCULAR DISORDER [None]
  - EPILEPSY [None]
  - BRADYCARDIA [None]
  - ARRHYTHMIA [None]
